FAERS Safety Report 24088648 (Version 1)
Quarter: 2024Q3

REPORT INFORMATION
  Report Type: Report from Study
  Country: US (occurrence: None)
  Receive Date: 20240715
  Receipt Date: 20240715
  Transmission Date: 20241017
  Serious: Yes (Hospitalization, Other)
  Sender: ASTRAZENECA
  Company Number: 2018SF30739

PATIENT
  Age: 27011 Day
  Sex: Male
  Weight: 83.9 kg

DRUGS (30)
  1. CALQUENCE [Suspect]
     Active Substance: ACALABRUTINIB
     Indication: Chronic lymphocytic leukaemia
     Route: 048
     Dates: start: 20180924, end: 20190827
  2. HYDROCHLOROTHIAZIDE [Concomitant]
     Active Substance: HYDROCHLOROTHIAZIDE
  3. BACTRIM DS [Concomitant]
     Active Substance: SULFAMETHOXAZOLE\TRIMETHOPRIM
  4. CARVEDILOL [Concomitant]
     Active Substance: CARVEDILOL
  5. LOSARTAN POTASSIUM [Concomitant]
     Active Substance: LOSARTAN POTASSIUM
  6. PRAVASTATIN SODIUM [Concomitant]
     Active Substance: PRAVASTATIN SODIUM
  7. METFORMIN HYDROCHLORIDE [Concomitant]
     Active Substance: METFORMIN HYDROCHLORIDE
  8. TOBRAMYCIN [Concomitant]
     Active Substance: TOBRAMYCIN\TOBRAMYCIN SULFATE
  9. SODIUM CHLORIDE [Concomitant]
     Active Substance: SODIUM CHLORIDE
  10. ZANTAC [Concomitant]
     Active Substance: RANITIDINE HYDROCHLORIDE
  11. NEUPOGEN [Concomitant]
     Active Substance: FILGRASTIM
  12. ACYCLOVIR [Concomitant]
     Active Substance: ACYCLOVIR
  13. ALLEGRA [Concomitant]
     Active Substance: FEXOFENADINE HYDROCHLORIDE
  14. ALLOPURINOL [Concomitant]
     Active Substance: ALLOPURINOL
  15. ATORVASTATIN [Concomitant]
     Active Substance: ATORVASTATIN
  16. BACTRIM [Concomitant]
     Active Substance: SULFAMETHOXAZOLE\TRIMETHOPRIM
  17. BUDESONIDE [Concomitant]
     Active Substance: BUDESONIDE
  18. FLONASE [Concomitant]
     Active Substance: FLUTICASONE PROPIONATE
  19. GENTAMICIN [Concomitant]
     Active Substance: GENTAMICIN
  20. LATANOPROST [Concomitant]
     Active Substance: LATANOPROST
  21. LEVAQUIN [Concomitant]
     Active Substance: LEVOFLOXACIN
  22. LOSARTAN [Concomitant]
     Active Substance: LOSARTAN
  23. SALINE [Concomitant]
     Active Substance: SODIUM CHLORIDE
  24. PROAIR HFA [Concomitant]
     Active Substance: ALBUTEROL SULFATE
  25. TAMSULOSIN [Concomitant]
     Active Substance: TAMSULOSIN
  26. TOBRAMYCIN [Concomitant]
     Active Substance: TOBRAMYCIN\TOBRAMYCIN SULFATE
  27. TYLENOL [Concomitant]
     Active Substance: ACETAMINOPHEN
  28. VANCOMYCIN [Concomitant]
     Active Substance: VANCOMYCIN
  29. VITAMIN D [Concomitant]
     Active Substance: VITAMIN D NOS
  30. ZANTAC [Concomitant]
     Active Substance: RANITIDINE HYDROCHLORIDE

REACTIONS (10)
  - Pneumonia [Recovered/Resolved]
  - Thrombosis [Unknown]
  - Anaemia [Recovering/Resolving]
  - Neutropenia [Recovering/Resolving]
  - Oral blood blister [Unknown]
  - Pulmonary congestion [Unknown]
  - Cough [Unknown]
  - Arthralgia [Unknown]
  - Off label use [Unknown]
  - Product use in unapproved indication [Unknown]

NARRATIVE: CASE EVENT DATE: 20181004
